FAERS Safety Report 5892108-9 (Version None)
Quarter: 2008Q3

REPORT INFORMATION
  Report Type: 
  Country: None (occurrence: None)
  Receive Date: 20080922
  Receipt Date: 20080905
  Transmission Date: 20090109
  Serious: No
  Sender: FDA-Public Use
  Company Number: US-B.I. PHARMACEUTICALS,INC./RIDGEFIELD-2008-BP-13237BP

PATIENT
  Age: 80 Year
  Sex: Female
  Weight: 59 kg

DRUGS (6)
  1. SPIRIVA [Suspect]
     Route: 055
     Dates: end: 20080806
  2. COMBIVENT [Concomitant]
     Dosage: 2 PUFFS Q4H PRN
     Route: 055
  3. ADVAIR DISKUS 100/50 [Concomitant]
     Dosage: 250/50 1 PUFF BID
  4. ZETIA [Concomitant]
     Dosage: 53.5714MG
  5. LEVOXYL [Concomitant]
     Dosage: 100MG
  6. ENALAPRIL MALEATE [Concomitant]
     Dosage: 10MG

REACTIONS (2)
  - BURNING SENSATION [None]
  - DEPRESSED MOOD [None]
